FAERS Safety Report 5490514-8 (Version None)
Quarter: 2007Q4

REPORT INFORMATION
  Report Type: 
  Country: None (occurrence: None)
  Receive Date: 20071017
  Receipt Date: 20071017
  Transmission Date: 20080405
  Serious: Yes (Death)
  Sender: FDA-Public Use
  Company Number: None

PATIENT
  Age: 70 Year
  Sex: Male
  Weight: 81.6475 kg

DRUGS (1)
  1. AVANDAMET [Suspect]
     Indication: TYPE 2 DIABETES MELLITUS

REACTIONS (4)
  - CARDIAC ARREST [None]
  - HEART RATE INCREASED [None]
  - HEART RATE IRREGULAR [None]
  - URINARY TRACT INFECTION [None]
